FAERS Safety Report 6085420-4 (Version None)
Quarter: 2009Q1

REPORT INFORMATION
  Report Type: 
  Country: None (occurrence: None)
  Receive Date: 20090217
  Receipt Date: 20081008
  Transmission Date: 20090719
  Serious: No
  Sender: FDA-Public Use
  Company Number: WAES 0810USA01704

PATIENT
  Age: 86 Year
  Sex: Female
  Weight: 58.0604 kg

DRUGS (1)
  1. ZOLINZA [Suspect]
     Indication: MYCOSIS FUNGOIDES
     Dosage: 400 MG/DAILY/PO
     Route: 048
     Dates: start: 20080912, end: 20081030

REACTIONS (7)
  - ANOREXIA [None]
  - ASTHENIA [None]
  - DEHYDRATION [None]
  - FATIGUE [None]
  - HAEMORRHAGE [None]
  - HYPERGLYCAEMIA [None]
  - OPEN WOUND [None]
